FAERS Safety Report 22051145 (Version 1)
Quarter: 2023Q1

REPORT INFORMATION
  Report Type: Spontaneous
  Country: US (occurrence: US)
  Receive Date: 20230301
  Receipt Date: 20230301
  Transmission Date: 20230417
  Serious: No
  Sender: FDA-Public Use
  Company Number: US-009507513-2302USA005138

PATIENT
  Age: 70 Year
  Sex: Female

DRUGS (2)
  1. KEYTRUDA [Suspect]
     Active Substance: PEMBROLIZUMAB
     Indication: Lung neoplasm malignant
  2. ALIMTA [Suspect]
     Active Substance: PEMETREXED DISODIUM
     Indication: Lung neoplasm malignant

REACTIONS (7)
  - Oral mucosal exfoliation [Unknown]
  - Oral discomfort [Unknown]
  - Breath odour [Unknown]
  - Blood thyroid stimulating hormone abnormal [Unknown]
  - Plicated tongue [Unknown]
  - Tongue pigmentation [Unknown]
  - Erythema [Unknown]
